FAERS Safety Report 10995055 (Version 1)
Quarter: 2015Q2

REPORT INFORMATION
  Report Type: Spontaneous
  Country: US (occurrence: US)
  Receive Date: 20150407
  Receipt Date: 20150407
  Transmission Date: 20150821
  Serious: No
  Sender: FDA-Public Use
  Company Number: US-GLAXOSMITHKLINE-US2015045700

PATIENT
  Sex: Female

DRUGS (14)
  1. SINGULAIR [Concomitant]
     Active Substance: MONTELUKAST SODIUM
  2. CALCIUM [Concomitant]
     Active Substance: CALCIUM
  3. ATIVAN [Concomitant]
     Active Substance: LORAZEPAM
  4. LANOXIN [Concomitant]
     Active Substance: DIGOXIN
  5. LIPITOR [Concomitant]
     Active Substance: ATORVASTATIN CALCIUM
  6. VENTOLIN HFA [Suspect]
     Active Substance: ALBUTEROL SULFATE
     Indication: CHRONIC OBSTRUCTIVE PULMONARY DISEASE
     Dosage: UNK
     Route: 055
  7. ALDACTONE [Concomitant]
     Active Substance: SPIRONOLACTONE
  8. LISINOPRIL. [Concomitant]
     Active Substance: LISINOPRIL
  9. ASPIRIN. [Concomitant]
     Active Substance: ASPIRIN
  10. NITROGLYCERIN. [Concomitant]
     Active Substance: NITROGLYCERIN
  11. TOPROL XL [Concomitant]
     Active Substance: METOPROLOL SUCCINATE
  12. ALBUTEROL NEBULIZER [Concomitant]
     Active Substance: ALBUTEROL
  13. LASIX [Concomitant]
     Active Substance: FUROSEMIDE
  14. PRILOSEC [Concomitant]
     Active Substance: OMEPRAZOLE MAGNESIUM

REACTIONS (2)
  - Dyspnoea [Unknown]
  - Extra dose administered [Unknown]
